FAERS Safety Report 11256607 (Version 1)
Quarter: 2015Q3

REPORT INFORMATION
  Report Type: Spontaneous
  Country: US (occurrence: US)
  Receive Date: 20150709
  Receipt Date: 20150709
  Transmission Date: 20151125
  Serious: No
  Sender: FDA-Public Use
  Company Number: US-PURDUE-USA-2014-0118407

PATIENT
  Age: 37 Year
  Sex: Female

DRUGS (1)
  1. BUTRANS [Suspect]
     Active Substance: BUPRENORPHINE
     Indication: PAIN
     Dosage: 20 MCG/HR, WEEKLY
     Route: 062
     Dates: start: 201405

REACTIONS (14)
  - Drug effect increased [Unknown]
  - Fatigue [Unknown]
  - Application site pain [Unknown]
  - Drug hypersensitivity [Unknown]
  - Application site pruritus [Recovered/Resolved]
  - Insomnia [Unknown]
  - Dizziness [Recovered/Resolved]
  - Application site scar [Unknown]
  - Arrhythmia [Recovered/Resolved]
  - Medication residue present [Unknown]
  - Feeling abnormal [Unknown]
  - Application site erythema [Recovered/Resolved]
  - Application site vesicles [Not Recovered/Not Resolved]
  - Wrong technique in product usage process [Unknown]

NARRATIVE: CASE EVENT DATE: 201405
